FAERS Safety Report 6061501-6 (Version None)
Quarter: 2009Q1

REPORT INFORMATION
  Report Type: 
  Country: None (occurrence: None)
  Receive Date: 20090202
  Receipt Date: 20090121
  Transmission Date: 20090719
  Serious: Yes (Hospitalization, Other)
  Sender: FDA-Public Use
  Company Number: US-PFIZER INC-2009158965

PATIENT
  Age: 45 Year
  Sex: Female

DRUGS (1)
  1. METRONIDAZOLE AND METRONIDAZOLE BENZOATE AND METRONIDAZOLE HYDROCHLORI [Suspect]
     Dosage: 750 MG, 4X/DAY
     Route: 048

REACTIONS (2)
  - CEREBELLAR ATAXIA [None]
  - ENCEPHALOPATHY [None]
